FAERS Safety Report 6951791 (Version 1)
Quarter: 2020Q3

REPORT INFORMATION
  Report Type: Report from Study
  Country: CN (occurrence: CN)
  Receive Date: 20090325
  Receipt Date: 20090325
  Transmission Date: 20201104
  Serious: Yes (Other)
  Sender: FDA-Public Use
  Company Number: CN-ROCHE-622659

PATIENT

DRUGS (2)
  1. IBANDRONIC ACID. [Suspect]
     Active Substance: IBANDRONIC ACID
     Indication: PROSTATE CANCER METASTATIC
     Dosage: 6 MG RESOLVED IN 500 ML NS, USED CONTINUOUSLY FOR 3 DAYS IN 1ST CYCLE
     Route: 041
  2. IBANDRONIC ACID. [Suspect]
     Active Substance: IBANDRONIC ACID
     Dosage: THE DOSE REPORTED AS MAINTAINING DOSE
     Route: 041

REACTIONS (1)
  - Metastases to bone [Unknown]
